FAERS Safety Report 20909924 (Version 2)
Quarter: 2022Q2

REPORT INFORMATION
  Report Type: Spontaneous
  Country: US (occurrence: US)
  Receive Date: 20220603
  Receipt Date: 20220618
  Transmission Date: 20220721
  Serious: No
  Sender: FDA-Public Use
  Company Number: US-UNITED THERAPEUTICS-UNT-2022-011464

PATIENT
  Sex: Male

DRUGS (2)
  1. REMODULIN [Suspect]
     Active Substance: TREPROSTINIL
     Indication: Pulmonary arterial hypertension
     Dosage: UNK, CONTINUING
     Route: 058
     Dates: start: 20210512
  2. REMODULIN [Suspect]
     Active Substance: TREPROSTINIL
     Dosage: 0.0421 ?G/KG, CONTINUING
     Route: 058

REACTIONS (5)
  - Infusion site pain [Not Recovered/Not Resolved]
  - Infusion site swelling [Not Recovered/Not Resolved]
  - Device dislocation [Recovered/Resolved]
  - Device placement issue [Unknown]
  - Device maintenance issue [Unknown]
